FAERS Safety Report 22115677 (Version 1)
Quarter: 2023Q1

REPORT INFORMATION
  Report Type: Spontaneous
  Country: FR (occurrence: FR)
  Receive Date: 20230320
  Receipt Date: 20230320
  Transmission Date: 20230418
  Serious: Yes (Hospitalization)
  Sender: FDA-Public Use
  Company Number: None

PATIENT
  Age: 71 Year
  Sex: Female
  Weight: 40 kg

DRUGS (5)
  1. CILASTATIN SODIUM\IMIPENEM [Suspect]
     Active Substance: CILASTATIN SODIUM\IMIPENEM
     Indication: Antibiotic therapy
     Dosage: 500 MILLIGRAM, Q6H
     Route: 042
     Dates: start: 20221208, end: 20221221
  2. TEMOCILLIN [Suspect]
     Active Substance: TEMOCILLIN
     Indication: Antibiotic therapy
     Dosage: 3 GRAM, Q12H
     Route: 042
     Dates: start: 20221201, end: 20221208
  3. CEFTRIAXONE [Suspect]
     Active Substance: CEFTRIAXONE
     Indication: Antibiotic therapy
     Dosage: 1 GRAM, Q24H
     Route: 042
     Dates: start: 20221125, end: 20221129
  4. METRONIDAZOLE [Suspect]
     Active Substance: METRONIDAZOLE
     Indication: Antibiotic therapy
     Dosage: 500 MILLIGRAM, Q8H
     Route: 042
     Dates: start: 20221125, end: 20221129
  5. TYGACIL [Suspect]
     Active Substance: TIGECYCLINE
     Indication: Antibiotic therapy
     Dosage: 50 MILLIGRAM, Q12H
     Route: 042
     Dates: start: 20221130, end: 20221201

REACTIONS (1)
  - Coombs negative haemolytic anaemia [Recovering/Resolving]

NARRATIVE: CASE EVENT DATE: 20230107
